FAERS Safety Report 5413612-3 (Version None)
Quarter: 2007Q3

REPORT INFORMATION
  Report Type: 
  Country: None (occurrence: None)
  Receive Date: 20070814
  Receipt Date: 20061019
  Transmission Date: 20080115
  Serious: No
  Sender: FDA-Public Use
  Company Number: US-BRISTOL-MYERS SQUIBB COMPANY-13547419

PATIENT
  Age: 58 Year
  Sex: Female

DRUGS (7)
  1. GLUCOVANCE [Suspect]
     Indication: DIABETES MELLITUS
     Route: 048
     Dates: start: 20060928, end: 20061005
  2. NEXIUM [Concomitant]
  3. ZETIA [Concomitant]
  4. TRICOR [Concomitant]
  5. LIPITOR [Concomitant]
  6. ATENOLOL [Concomitant]
  7. AVAPRO [Concomitant]

REACTIONS (1)
  - DRUG INEFFECTIVE [None]
